FAERS Safety Report 20317332 (Version 1)
Quarter: 2022Q1

REPORT INFORMATION
  Report Type: Spontaneous
  Country: CA (occurrence: CA)
  Receive Date: 20220110
  Receipt Date: 20220110
  Transmission Date: 20220423
  Serious: Yes (Hospitalization, Other)
  Sender: FDA-Public Use
  Company Number: None

PATIENT
  Age: 22 Year
  Sex: Male
  Weight: 60 kg

DRUGS (3)
  1. METHOTREXATE [Suspect]
     Active Substance: METHOTREXATE
     Indication: Product used for unknown indication
     Dosage: 1 EVERY 1 WEEKS
  2. BUDESONIDE [Concomitant]
     Active Substance: BUDESONIDE
     Dosage: EVERY 1 DAYS
     Route: 048
  3. HYDROMORPHONE [Concomitant]
     Active Substance: HYDROMORPHONE
     Dosage: 3 EVERY 1 DAYS
     Route: 048

REACTIONS (6)
  - Abdominal abscess [Unknown]
  - Abscess intestinal [Unknown]
  - Anal fistula [Unknown]
  - Arthralgia [Unknown]
  - Crohn^s disease [Unknown]
  - Intestinal fistula [Unknown]
